FAERS Safety Report 5908738-1 (Version None)
Quarter: 2008Q4

REPORT INFORMATION
  Report Type: 
  Country: None (occurrence: None)
  Receive Date: 20081006
  Receipt Date: 20080925
  Transmission Date: 20090506
  Serious: Yes (Hospitalization, Other)
  Sender: FDA-Public Use
  Company Number: B0539550A

PATIENT
  Age: 80 Year
  Sex: Female

DRUGS (2)
  1. ARIXTRA [Suspect]
     Indication: THROMBOSIS PROPHYLAXIS
     Dosage: 2.5MG PER DAY
     Route: 058
     Dates: start: 20080101, end: 20080101
  2. ANALGESIC [Concomitant]
     Route: 065

REACTIONS (4)
  - ANAEMIA [None]
  - CARDIAC DISORDER [None]
  - INCISION SITE HAEMATOMA [None]
  - MUSCLE HAEMORRHAGE [None]
